FAERS Safety Report 25158786 (Version 1)
Quarter: 2025Q2

REPORT INFORMATION
  Report Type: Spontaneous
  Country: DE (occurrence: DE)
  Receive Date: 20250404
  Receipt Date: 20250404
  Transmission Date: 20250716
  Serious: Yes (Hospitalization, Other)
  Sender: DR REDDYS
  Company Number: None

PATIENT
  Sex: Female
  Weight: 1.87 kg

DRUGS (6)
  1. VENLAFAXINE [Suspect]
     Active Substance: VENLAFAXINE HYDROCHLORIDE
     Indication: Depression
     Dosage: + PREC
     Route: 064
     Dates: start: 202307, end: 202403
  2. MIRTAZAPINE [Concomitant]
     Active Substance: MIRTAZAPINE
     Indication: Sleep disorder
     Route: 064
     Dates: start: 202312, end: 202312
  3. ASPIRIN [Concomitant]
     Active Substance: ASPIRIN
     Indication: Prophylaxis
     Dosage: + PREC. ?0-0-150 MG/D
     Route: 064
     Dates: start: 202307, end: 202403
  4. LEVOTHYROXINE SODIUM [Concomitant]
     Active Substance: LEVOTHYROXINE SODIUM
     Indication: Hypothyroidism
     Dosage: + PREC.
     Route: 064
     Dates: start: 202307, end: 202403
  5. INSULIN HUMAN [Concomitant]
     Active Substance: INSULIN HUMAN
     Indication: Gestational diabetes
     Dosage: ACCORDING TO PATIENT GESTATIONAL DIABETES WAS MANAGED BY DIET, THIS PROBABLY CHANGED IN THE COURSE O
     Route: 064
  6. METFORMIN [Concomitant]
     Active Substance: METFORMIN HYDROCHLORIDE
     Indication: Product used for unknown indication
     Route: 064
     Dates: start: 202307, end: 202309

REACTIONS (5)
  - Oxygen saturation decreased [Recovered/Resolved]
  - Bradycardia neonatal [Recovered/Resolved]
  - Poor feeding infant [Recovered/Resolved]
  - Small for dates baby [Recovering/Resolving]
  - Foetal exposure during pregnancy [Unknown]

NARRATIVE: CASE EVENT DATE: 20240301
